FAERS Safety Report 8807578 (Version 1)
Quarter: 2012Q4

REPORT INFORMATION
  Report Type: 
  Country: US (occurrence: US)
  Receive Date: 20120925
  Receipt Date: 20120925
  Transmission Date: 20130627
  Serious: Yes (Hospitalization, Other)
  Sender: FDA-Public Use
  Company Number: US-JNJFOC-20120908843

PATIENT

DRUGS (2)
  1. ABCIXIMAB [Suspect]
     Indication: CAROTID ARTERY OCCLUSION
     Route: 013
  2. ABCIXIMAB [Suspect]
     Indication: CAROTID ARTERY OCCLUSION
     Dosage: followed by an infusion
     Route: 040

REACTIONS (3)
  - Haemorrhage intracranial [Unknown]
  - Hemiparesis [Recovering/Resolving]
  - Incorrect route of drug administration [Unknown]
